FAERS Safety Report 14816127 (Version 3)
Quarter: 2018Q2

REPORT INFORMATION
  Report Type: Spontaneous
  Country: GB (occurrence: GB)
  Receive Date: 20180426
  Receipt Date: 20180426
  Transmission Date: 20180711
  Serious: Yes (Other)
  Sender: FDA-Public Use
  Company Number: PHHY2018GB072401

PATIENT
  Sex: Female
  Weight: 19 kg

DRUGS (8)
  1. ASPIRIN. [Suspect]
     Active Substance: ASPIRIN
     Indication: PRODUCT USED FOR UNKNOWN INDICATION
     Dosage: 75 MG, QD
     Route: 064
  2. ATENOLOL. [Suspect]
     Active Substance: ATENOLOL
     Indication: PRODUCT USED FOR UNKNOWN INDICATION
     Route: 064
  3. PREDNISOLONE. [Suspect]
     Active Substance: PREDNISOLONE
     Dosage: 40 MG, QD
     Route: 064
  4. CEFUROXIME. [Suspect]
     Active Substance: CEFUROXIME
     Indication: LOWER RESPIRATORY TRACT INFECTION
     Route: 064
  5. PREDNISOLONE. [Suspect]
     Active Substance: PREDNISOLONE
     Indication: PRODUCT USED FOR UNKNOWN INDICATION
     Dosage: 60 MG, QD
     Route: 064
  6. AZATHIOPRINE. [Suspect]
     Active Substance: AZATHIOPRINE
     Indication: PRODUCT USED FOR UNKNOWN INDICATION
     Route: 064
  7. DIGOXIN. [Suspect]
     Active Substance: DIGOXIN
     Indication: PRODUCT USED FOR UNKNOWN INDICATION
     Route: 064
  8. PREDNISOLONE. [Suspect]
     Active Substance: PREDNISOLONE
     Dosage: 20 MG, QD
     Route: 064

REACTIONS (7)
  - Respiratory distress [Recovered/Resolved]
  - Anaemia [Recovered/Resolved]
  - Patent ductus arteriosus [Recovered/Resolved]
  - Staphylococcal sepsis [Recovered/Resolved]
  - Foetal exposure during pregnancy [Recovered/Resolved]
  - Cerebral haemorrhage [Recovered/Resolved]
  - Jaundice [Recovered/Resolved]
